FAERS Safety Report 8827797 (Version 1)
Quarter: 2012Q4

REPORT INFORMATION
  Report Type: Report from Study
  Country: DE (occurrence: DE)
  Receive Date: 20121005
  Receipt Date: 20121005
  Transmission Date: 20130627
  Serious: Yes (Hospitalization)
  Sender: FDA-Public Use
  Company Number: DE-JNJFOC-20111107941

PATIENT
  Age: 40 Year
  Sex: Male
  Weight: 90 kg

DRUGS (2)
  1. GOLIMUMAB [Suspect]
     Route: 058
  2. GOLIMUMAB [Suspect]
     Indication: SARCOIDOSIS
     Route: 058
     Dates: start: 20110607, end: 20111004

REACTIONS (1)
  - Pharyngeal haemorrhage [Recovered/Resolved]
